FAERS Safety Report 5766281-7 (Version None)
Quarter: 2008Q2

REPORT INFORMATION
  Report Type: 
  Country: None (occurrence: None)
  Receive Date: 20080606
  Receipt Date: 20080522
  Transmission Date: 20081010
  Serious: Yes (Hospitalization)
  Sender: FDA-Public Use
  Company Number: 2008AL005785

PATIENT
  Age: 58 Year
  Sex: Female

DRUGS (1)
  1. DIGOXIN [Suspect]
     Indication: ARRHYTHMIA
     Dosage: 0.25MG DAILY PO
     Route: 048
     Dates: end: 20080512

REACTIONS (6)
  - CONFUSIONAL STATE [None]
  - DIZZINESS [None]
  - FALL [None]
  - HALLUCINATION [None]
  - INCREASED TENDENCY TO BRUISE [None]
  - MENTAL STATUS CHANGES [None]
